FAERS Safety Report 5594125-5 (Version None)
Quarter: 2008Q1

REPORT INFORMATION
  Report Type: 
  Country: None (occurrence: None)
  Receive Date: 20080116
  Receipt Date: 20080109
  Transmission Date: 20080703
  Serious: Yes (Hospitalization)
  Sender: FDA-Public Use
  Company Number: DE-PFIZER INC-2008003318

PATIENT
  Sex: Female
  Weight: 45 kg

DRUGS (3)
  1. SUTENT [Suspect]
     Indication: GASTROINTESTINAL STROMAL TUMOUR
     Route: 048
     Dates: start: 20061001, end: 20070101
  2. PANTOZOL [Concomitant]
  3. PENTOXIFYLLINE [Concomitant]

REACTIONS (1)
  - HAEMOLYTIC ANAEMIA [None]
